FAERS Safety Report 9514122 (Version 1)
Quarter: 2013Q3

REPORT INFORMATION
  Report Type: Spontaneous
  Country: PH (occurrence: PH)
  Receive Date: 20130910
  Receipt Date: 20130910
  Transmission Date: 20140515
  Serious: Yes (Other)
  Sender: FDA-Public Use
  Company Number: PH-ACTAVIS-2013-16344

PATIENT
  Age: 50 Year
  Sex: Female

DRUGS (1)
  1. PACLITAXEL (UNKNOWN) [Suspect]
     Indication: ENDOMETRIAL CANCER STAGE I
     Dosage: 250 MG, TRIMESTER
     Route: 042
     Dates: start: 20130619

REACTIONS (2)
  - Dyspnoea [Recovered/Resolved]
  - Rash [Recovered/Resolved]
